FAERS Safety Report 23604074 (Version 2)
Quarter: 2024Q2

REPORT INFORMATION
  Report Type: Spontaneous
  Country: US (occurrence: US)
  Receive Date: 20240307
  Receipt Date: 20240404
  Transmission Date: 20240716
  Serious: Yes (Other)
  Sender: FDA-Public Use
  Company Number: US-AUROBINDO-AUR-APL-2024-009041

PATIENT
  Sex: Female

DRUGS (19)
  1. DULOXETINE [Suspect]
     Active Substance: DULOXETINE
     Indication: Axillary pain
     Dosage: 60 MILLIGRAM, DAILY
     Route: 065
  2. DULOXETINE [Suspect]
     Active Substance: DULOXETINE
     Indication: Neck pain
  3. DULOXETINE [Suspect]
     Active Substance: DULOXETINE
     Indication: Back pain
  4. GABAPENTIN [Suspect]
     Active Substance: GABAPENTIN
     Indication: Back pain
     Dosage: 300 MILLIGRAM, 3 TIMES A DAY (EVERY 8 HOURS)
     Route: 065
  5. GABAPENTIN [Suspect]
     Active Substance: GABAPENTIN
     Indication: Neck pain
  6. GABAPENTIN [Suspect]
     Active Substance: GABAPENTIN
     Indication: Axillary pain
  7. METHADONE [Suspect]
     Active Substance: METHADONE HYDROCHLORIDE
     Indication: Pain
     Dosage: 10 MILLIGRAM, 3 TIMES A DAY
     Route: 065
  8. TRAMADOL [Suspect]
     Active Substance: TRAMADOL\TRAMADOL HYDROCHLORIDE
     Indication: Back pain
     Dosage: 50 MILLIGRAM, 3 TIMES A DAY (EVERY 8 HOURS)
     Route: 065
  9. TRAMADOL [Suspect]
     Active Substance: TRAMADOL\TRAMADOL HYDROCHLORIDE
     Indication: Neck pain
  10. TRAMADOL [Suspect]
     Active Substance: TRAMADOL\TRAMADOL HYDROCHLORIDE
     Indication: Axillary pain
  11. MORPHINE [Suspect]
     Active Substance: MORPHINE
     Indication: Axillary pain
     Dosage: 30 MILLIGRAM, TWO TIMES A DAY (EXTENDED RELAASE)
     Route: 065
  12. MORPHINE [Suspect]
     Active Substance: MORPHINE
     Indication: Neck pain
     Dosage: 7.5 MILLIGRAM, EVERY FOUR HOUR (IMMEDIATE RELEASE)
     Route: 065
  13. MORPHINE [Suspect]
     Active Substance: MORPHINE
     Indication: Back pain
     Dosage: 30 MILLIGRAM, 3 TIMES A DAY
     Route: 065
  14. FENTANYL [Suspect]
     Active Substance: FENTANYL\FENTANYL CITRATE
     Indication: Axillary pain
     Dosage: UNK
     Route: 065
  15. FENTANYL [Suspect]
     Active Substance: FENTANYL\FENTANYL CITRATE
     Indication: Neck pain
  16. FENTANYL [Suspect]
     Active Substance: FENTANYL\FENTANYL CITRATE
     Indication: Back pain
  17. OXYCODONE [Concomitant]
     Active Substance: OXYCODONE\OXYCODONE HYDROCHLORIDE
     Indication: Axillary pain
     Dosage: 15 MILLIGRAM, EVERY FOUR HOUR
     Route: 065
  18. OXYCODONE [Concomitant]
     Active Substance: OXYCODONE\OXYCODONE HYDROCHLORIDE
     Indication: Neck pain
     Dosage: 36 MILLIGRAM, 3 TIMES A DAY
     Route: 065
  19. OXYCODONE [Concomitant]
     Active Substance: OXYCODONE\OXYCODONE HYDROCHLORIDE
     Indication: Back pain
     Dosage: UNK
     Route: 042

REACTIONS (2)
  - Electrocardiogram QT prolonged [Unknown]
  - Drug ineffective [Unknown]
